FAERS Safety Report 10355829 (Version 1)
Quarter: 2014Q3

REPORT INFORMATION
  Report Type: Spontaneous
  Country: JP (occurrence: JP)
  Receive Date: 20140731
  Receipt Date: 20140731
  Transmission Date: 20150326
  Serious: Yes (Hospitalization, Other)
  Sender: FDA-Public Use
  Company Number: JP-BRISTOL-MYERS SQUIBB COMPANY-21249990

PATIENT
  Age: 60 Year
  Sex: Female

DRUGS (1)
  1. ORENCIA [Suspect]
     Active Substance: ABATACEPT
     Indication: RHEUMATOID ARTHRITIS
     Dosage: LAST DOSE APR2014
     Route: 042
     Dates: start: 2010

REACTIONS (4)
  - Pneumonia [Unknown]
  - Weight decreased [Unknown]
  - Muscular weakness [Unknown]
  - Malaise [Unknown]

NARRATIVE: CASE EVENT DATE: 20140724
